FAERS Safety Report 17816605 (Version 1)
Quarter: 2020Q2

REPORT INFORMATION
  Report Type: Spontaneous
  Country: US (occurrence: US)
  Receive Date: 20200522
  Receipt Date: 20200522
  Transmission Date: 20200714
  Serious: Yes (Hospitalization)
  Sender: FDA-Public Use
  Company Number: US-MYLANLABS-2020M1050554

PATIENT
  Age: 30 Year
  Sex: Male

DRUGS (4)
  1. ZALEPLON. [Suspect]
     Active Substance: ZALEPLON
     Indication: INTENTIONAL OVERDOSE
  2. SERTRALINE [Suspect]
     Active Substance: SERTRALINE HYDROCHLORIDE
     Indication: INTENTIONAL OVERDOSE
  3. ZALEPLON. [Suspect]
     Active Substance: ZALEPLON
     Indication: SUICIDE ATTEMPT
     Dosage: PILLS
     Route: 048
  4. SERTRALINE [Suspect]
     Active Substance: SERTRALINE HYDROCHLORIDE
     Indication: SUICIDE ATTEMPT
     Dosage: PILLS
     Route: 048

REACTIONS (6)
  - Respiratory rate increased [Unknown]
  - Blood pressure increased [Unknown]
  - Somnolence [Unknown]
  - Hyperkalaemia [Unknown]
  - Intentional overdose [Unknown]
  - Suicide attempt [Unknown]
